FAERS Safety Report 6245003-X (Version None)
Quarter: 2009Q2

REPORT INFORMATION
  Report Type: 
  Country: None (occurrence: None)
  Receive Date: 20090623
  Receipt Date: 20090623
  Transmission Date: 20091009
  Serious: No
  Sender: FDA-Public Use
  Company Number: None

PATIENT
  Age: 8 Year
  Sex: Male

DRUGS (1)
  1. COPPERTONE WATER BABIES [Suspect]
     Dates: start: 20090610, end: 20090610

REACTIONS (6)
  - APPLICATION SITE VESICLES [None]
  - BURNS SECOND DEGREE [None]
  - CHEMICAL BURN OF SKIN [None]
  - DRUG HYPERSENSITIVITY [None]
  - PYREXIA [None]
  - SUNBURN [None]
